FAERS Safety Report 9505861 (Version 1)
Quarter: 2013Q1

REPORT INFORMATION
  Report Type: Spontaneous
  Country: US (occurrence: None)
  Receive Date: 20130219
  Receipt Date: 20130219
  Transmission Date: 20140127
  Serious: Yes (Life-Threatening)
  Sender: FDA-Public Use
  Company Number: 1201USA02005

PATIENT
  Sex: Male

DRUGS (2)
  1. ZOCOR (SIMVASTATIN) TABLET [Suspect]
     Indication: BLOOD CHOLESTEROL INCREASED
     Route: 048
  2. BIAXIN (CLARITHROMYCIN) [Suspect]

REACTIONS (2)
  - Rhabdomyolysis [None]
  - Off label use [None]
